FAERS Safety Report 7606700 (Version 5)
Quarter: 2013Q3

REPORT INFORMATION
  Report Type: Spontaneous
  Country: US (occurrence: US)
  Receive Date: 20100927
  Receipt Date: 20130828
  Transmission Date: 20140515
  Serious: Yes (Other)
  Sender: FDA-Public Use
  Company Number: US-BIOGENIDEC-2010BI032042

PATIENT
  Age: 53 Year
  Sex: Male
  Weight: 123 kg

DRUGS (1)
  1. AVONEX [Suspect]
     Indication: MULTIPLE SCLEROSIS
     Route: 030
     Dates: start: 200603, end: 20130608

REACTIONS (5)
  - Prostate cancer [Recovered/Resolved]
  - Mobility decreased [Unknown]
  - Weight decreased [Recovered/Resolved with Sequelae]
  - Peripheral coldness [Not Recovered/Not Resolved]
  - Diarrhoea [Unknown]
